FAERS Safety Report 4948435-2 (Version None)
Quarter: 2006Q1

REPORT INFORMATION
  Report Type: 
  Country: None (occurrence: None)
  Receive Date: 20060313
  Receipt Date: 20060227
  Transmission Date: 20060701
  Serious: Yes (Hospitalization)
  Sender: FDA-Public Use
  Company Number: FRP06000277

PATIENT
  Age: 80 Year
  Sex: Male

DRUGS (11)
  1. DIDRONEL (ETIDRONATE DISODIUM) TABLET, 400 MG [Suspect]
     Indication: OSTEOPOROSIS
     Dosage: 400 MG, CYCLIC 1/D; ORAL
     Route: 048
     Dates: start: 20020101, end: 20060223
  2. PLAVIX [Suspect]
     Dosage: ORAL
     Route: 048
     Dates: end: 20060223
  3. EUCALCIC (CALCIUM CARBONATE) [Concomitant]
  4. SIMVASTATIN [Concomitant]
  5. LASIX [Concomitant]
  6. KARDEGIC /FRA/(ACETYLSALICYLATE LYSINE) [Concomitant]
  7. ZYMA (ENZYMNES (NOS) [Concomitant]
  8. AVODART [Concomitant]
  9. IMOVANE (ZOPICLONE) [Concomitant]
  10. FORLAX (MACROGOL) [Concomitant]
  11. ATACAND [Concomitant]

REACTIONS (3)
  - ANAEMIA [None]
  - MELAENA [None]
  - OESOPHAGEAL ULCER [None]
